FAERS Safety Report 21004596 (Version 1)
Quarter: 2022Q2

REPORT INFORMATION
  Report Type: Spontaneous
  Country: US (occurrence: US)
  Receive Date: 20220624
  Receipt Date: 20220624
  Transmission Date: 20220721
  Serious: Yes (Hospitalization)
  Sender: FDA-Public Use
  Company Number: US-ELI_LILLY_AND_COMPANY-US202206007188

PATIENT
  Age: 58 Year
  Sex: Male

DRUGS (1)
  1. FORTEO [Suspect]
     Active Substance: TERIPARATIDE
     Indication: Osteoporosis
     Dosage: UNK UNK, UNKNOWN
     Route: 065

REACTIONS (8)
  - Bradycardia [Unknown]
  - Gait disturbance [Unknown]
  - Malaise [Unknown]
  - Dizziness [Unknown]
  - Injection site pain [Recovering/Resolving]
  - Injection site bruising [Recovering/Resolving]
  - Injection site erythema [Recovering/Resolving]
  - Product storage error [Unknown]

NARRATIVE: CASE EVENT DATE: 20220613
